FAERS Safety Report 23100787 (Version 2)
Quarter: 2023Q4

REPORT INFORMATION
  Report Type: Spontaneous
  Country: US (occurrence: US)
  Receive Date: 20231024
  Receipt Date: 20231110
  Transmission Date: 20240110
  Serious: No
  Sender: FDA-Public Use
  Company Number: US-ANIPHARMA-2023-US-001991

PATIENT
  Age: 61 Year
  Sex: Female
  Weight: 63.5 kg

DRUGS (3)
  1. ACEBUTOLOL HYDROCHLORIDE [Suspect]
     Active Substance: ACEBUTOLOL HYDROCHLORIDE
     Indication: Hypertension
     Dosage: ONE CAPSULE DAILY IN THE MORNING
     Route: 048
     Dates: start: 20230101, end: 20230102
  2. SYNTHROID [Concomitant]
     Active Substance: LEVOTHYROXINE SODIUM
  3. VITAMINS [Concomitant]
     Active Substance: VITAMINS

REACTIONS (3)
  - Palpitations [Recovered/Resolved]
  - Dyspepsia [Recovered/Resolved]
  - Diarrhoea [Recovered/Resolved]

NARRATIVE: CASE EVENT DATE: 20230103
